FAERS Safety Report 6010862-2 (Version None)
Quarter: 2008Q4

REPORT INFORMATION
  Report Type: 
  Country: None (occurrence: None)
  Receive Date: 20081218
  Receipt Date: 20081215
  Transmission Date: 20090506
  Serious: Yes (Hospitalization)
  Sender: FDA-Public Use
  Company Number: US-BAYER-200812688BCC

PATIENT
  Age: 77 Year
  Sex: Male
  Weight: 86 kg

DRUGS (2)
  1. ASPIRIN [Suspect]
     Indication: ANALGESIA
     Route: 048
  2. LISINOPRIL [Concomitant]

REACTIONS (2)
  - MYOCARDIAL INFARCTION [None]
  - PAIN [None]
